FAERS Safety Report 8304913-X (Version None)
Quarter: 2012Q2

REPORT INFORMATION
  Report Type: 
  Country: None (occurrence: None)
  Receive Date: 20120423
  Receipt Date: 20120412
  Transmission Date: 20120825
  Serious: Yes (Other)
  Sender: FDA-Public Use
  Company Number: FR-ROCHE-1060902

PATIENT
  Sex: Male

DRUGS (2)
  1. LUCENTIS [Suspect]
     Indication: AGE-RELATED MACULAR DEGENERATION
     Route: 050
     Dates: start: 20111215
  2. LUCENTIS [Suspect]
     Route: 050
     Dates: start: 20120112

REACTIONS (2)
  - CHOROIDAL NEOVASCULARISATION [None]
  - MACULAR OEDEMA [None]
